FAERS Safety Report 5627868-5 (Version None)
Quarter: 2008Q1

REPORT INFORMATION
  Report Type: 
  Country: None (occurrence: None)
  Receive Date: 20080214
  Receipt Date: 20080214
  Transmission Date: 20080703
  Serious: Yes (Hospitalization)
  Sender: FDA-Public Use
  Company Number: None

PATIENT
  Sex: Male
  Weight: 115 kg

DRUGS (6)
  1. CYCLOPHOSPHAMIDE [Suspect]
     Dosage: 1800 MG
  2. DOXORUBICIN HYDROCHLORIDE [Suspect]
     Dosage: 96 MG
  3. ETOPOSIDE [Suspect]
     Dosage: 480 MG
  4. PREDNISONE TAB [Suspect]
     Dosage: 1400 MG
  5. RITUXIMAB (MOAB C2B8 ANTI CD20, CHIMERIC) [Suspect]
     Dosage: 900 MG
  6. VINCRISTINE SULFATE [Suspect]
     Dosage: 3.8 MG

REACTIONS (4)
  - ASTHENIA [None]
  - COUGH [None]
  - FATIGUE [None]
  - FEBRILE NEUTROPENIA [None]
